FAERS Safety Report 7372360-3 (Version None)
Quarter: 2011Q1

REPORT INFORMATION
  Report Type: 
  Country: None (occurrence: None)
  Receive Date: 20110324
  Receipt Date: 20110319
  Transmission Date: 20110831
  Serious: Yes (Hospitalization)
  Sender: FDA-Public Use
  Company Number: US-SANOFI-AVENTIS-2011SA017219

PATIENT
  Age: 75 Year
  Sex: Female

DRUGS (4)
  1. NEURONTIN [Concomitant]
  2. LANTUS [Suspect]
     Indication: TYPE 2 DIABETES MELLITUS
     Dosage: DOSE:55 UNIT(S)
     Route: 058
     Dates: start: 20070101
  3. SOLOSTAR [Suspect]
     Indication: TYPE 2 DIABETES MELLITUS
     Dates: start: 20070101
  4. CHOLESTEROL [Concomitant]

REACTIONS (7)
  - SINUSITIS [None]
  - STAPHYLOCOCCAL INFECTION [None]
  - BLOOD GLUCOSE DECREASED [None]
  - FATIGUE [None]
  - GASTROINTESTINAL INFECTION [None]
  - FEELING HOT [None]
  - HYPERHIDROSIS [None]
